FAERS Safety Report 6672034-8 (Version None)
Quarter: 2010Q2

REPORT INFORMATION
  Report Type: 
  Country: None (occurrence: None)
  Receive Date: 20100406
  Receipt Date: 20100322
  Transmission Date: 20101027
  Serious: Yes (Disabling, Other)
  Sender: FDA-Public Use
  Company Number: TUK2010A00040

PATIENT
  Age: 59 Year

DRUGS (5)
  1. ACTOS [Suspect]
     Indication: DRUG USE FOR UNKNOWN INDICATION
     Dosage: (30 MG) ORAL
     Route: 048
     Dates: start: 20100223, end: 20100304
  2. ASPIRIN [Concomitant]
  3. GLICLAZIDE (GLICLAZIDE) [Concomitant]
  4. METFORMIN HCL [Concomitant]
  5. SIMVASTATIN [Concomitant]

REACTIONS (1)
  - MIGRAINE [None]
